FAERS Safety Report 8851264 (Version 3)
Quarter: 2014Q3

REPORT INFORMATION
  Report Type: Spontaneous
  Country: CN (occurrence: CN)
  Receive Date: 20121019
  Receipt Date: 20140821
  Transmission Date: 20150326
  Serious: Yes (Death)
  Sender: FDA-Public Use
  Company Number: CN-NAPPMUNDI-GBR-2012-0011501

PATIENT
  Age: 59 Year
  Sex: Female

DRUGS (2)
  1. TRAMADOL HCL [Suspect]
     Active Substance: TRAMADOL HYDROCHLORIDE
     Indication: PAIN
     Dosage: 1 DF, DAILY
     Route: 048
     Dates: start: 20120814, end: 20120910
  2. OXYCODONE HCL PR TABLET 20 MG [Suspect]
     Active Substance: OXYCODONE HYDROCHLORIDE
     Indication: PAIN
     Dosage: 20 MG, Q12H
     Route: 048
     Dates: start: 20120811, end: 20120813

REACTIONS (2)
  - Malignant neoplasm progression [Fatal]
  - Purpura [Recovering/Resolving]

NARRATIVE: CASE EVENT DATE: 20120911
